FAERS Safety Report 23438110 (Version 1)
Quarter: 2024Q1

REPORT INFORMATION
  Report Type: Spontaneous
  Country: US (occurrence: US)
  Receive Date: 20240124
  Receipt Date: 20240124
  Transmission Date: 20240410
  Serious: Yes (Other)
  Sender: FDA-Public Use
  Company Number: US-ASTELLAS-2024US001448

PATIENT
  Age: 78 Year
  Sex: Male

DRUGS (5)
  1. IZERVAY [Suspect]
     Active Substance: AVACINCAPTAD PEGOL SODIUM
     Indication: Dry age-related macular degeneration
     Dosage: UNK UNK, UNKNOWN FREQ. (THIRD INJECTION) (EYE UNSPECIFIED)
     Route: 065
  2. IZERVAY [Suspect]
     Active Substance: AVACINCAPTAD PEGOL SODIUM
     Indication: Dry age-related macular degeneration
     Dosage: UNK UNK, UNKNOWN FREQ. (THIRD INJECTION) (EYE UNSPECIFIED)
     Route: 065
  3. IZERVAY [Suspect]
     Active Substance: AVACINCAPTAD PEGOL SODIUM
     Indication: Dry age-related macular degeneration
     Dosage: UNK UNK, UNKNOWN FREQ. (THIRD INJECTION) (EYE UNSPECIFIED)
     Route: 065
  4. IZERVAY [Suspect]
     Active Substance: AVACINCAPTAD PEGOL SODIUM
     Indication: Dry age-related macular degeneration
     Dosage: UNK UNK, UNKNOWN FREQ. (THIRD INJECTION) (EYE UNSPECIFIED)
     Route: 065
  5. IZERVAY [Suspect]
     Active Substance: AVACINCAPTAD PEGOL SODIUM
     Indication: Dry age-related macular degeneration
     Dosage: UNK UNK, UNKNOWN FREQ. (THIRD INJECTION) (EYE UNSPECIFIED)
     Route: 065

REACTIONS (2)
  - Eye haemorrhage [Unknown]
  - Neovascular age-related macular degeneration [Unknown]
